FAERS Safety Report 21338117 (Version 1)
Quarter: 2022Q3

REPORT INFORMATION
  Report Type: Spontaneous
  Country: BE (occurrence: BE)
  Receive Date: 20220915
  Receipt Date: 20220915
  Transmission Date: 20221026
  Serious: Yes (Other)
  Sender: FDA-Public Use
  Company Number: BE-TEVA-2022-BE-2061698

PATIENT
  Age: 46 Year
  Sex: Female

DRUGS (1)
  1. TAMOXIFEN [Suspect]
     Active Substance: TAMOXIFEN
     Indication: Breast cancer
     Dosage: UNK
     Route: 065
     Dates: start: 2017, end: 2021

REACTIONS (6)
  - Postmenopausal haemorrhage [Not Recovered/Not Resolved]
  - Menopause [Not Recovered/Not Resolved]
  - Endometrial hyperplasia [Unknown]
  - Cystitis [Unknown]
  - Abdominal pain lower [Unknown]
  - Secretion discharge [Recovered/Resolved]

NARRATIVE: CASE EVENT DATE: 20220701
